FAERS Safety Report 16785451 (Version 2)
Quarter: 2019Q4

REPORT INFORMATION
  Report Type: Report from Study
  Country: US (occurrence: US)
  Receive Date: 20190909
  Receipt Date: 20191202
  Transmission Date: 20200122
  Serious: Yes (Death, Hospitalization)
  Sender: FDA-Public Use
  Company Number: US-ROCHE-2164551

PATIENT
  Age: 58 Year
  Sex: Female
  Weight: 81.3 kg

DRUGS (14)
  1. OBINUTUZUMAB. [Suspect]
     Active Substance: OBINUTUZUMAB
     Dosage: X
     Route: 042
     Dates: start: 20180731
  2. OBINUTUZUMAB. [Suspect]
     Active Substance: OBINUTUZUMAB
     Route: 042
     Dates: start: 20180721
  3. OBINUTUZUMAB. [Suspect]
     Active Substance: OBINUTUZUMAB
     Dosage: CYCLE 2 DAYS 1-5?LAST DOSE ON 03/NOV/2018
     Route: 042
     Dates: start: 20180810, end: 20180811
  4. IBRUTINIB [Suspect]
     Active Substance: IBRUTINIB
     Indication: DIFFUSE LARGE B-CELL LYMPHOMA
     Dosage: ADMINISTERED ORALLY, DAYS 1-14, AT A DOSE OF 560MG; EVERY 21 DAYS FOR UP TO 6 CYCLES, OR UNTIL DISEA
     Route: 048
     Dates: start: 20180720, end: 20180731
  5. VENETOCLAX. [Suspect]
     Active Substance: VENETOCLAX
     Indication: DIFFUSE LARGE B-CELL LYMPHOMA
     Dosage: DAYS 2-14, AT VARYING DOSES OF 200-800MG (BASED UPON ASSIGNED DOSE LEVEL); EVERY 21 DAYS FOR UP TO 6
     Route: 048
     Dates: start: 20180804, end: 20180814
  6. IBRUTINIB [Suspect]
     Active Substance: IBRUTINIB
     Route: 048
     Dates: start: 20180810, end: 20180814
  7. PREDNISONE. [Suspect]
     Active Substance: PREDNISONE
     Dosage: CYCLE 2, DAY 1
     Route: 048
     Dates: start: 20180810, end: 20180814
  8. OBINUTUZUMAB. [Suspect]
     Active Substance: OBINUTUZUMAB
     Indication: DIFFUSE LARGE B-CELL LYMPHOMA
     Dosage: DAY 1 AND DAY 2
     Route: 042
     Dates: start: 20180720
  9. LENALIDOMIDE [Suspect]
     Active Substance: LENALIDOMIDE
     Route: 048
     Dates: start: 20180812, end: 20180812
  10. LENALIDOMIDE [Suspect]
     Active Substance: LENALIDOMIDE
     Route: 048
     Dates: start: 20180814, end: 20180814
  11. PREDNISONE. [Suspect]
     Active Substance: PREDNISONE
     Indication: DIFFUSE LARGE B-CELL LYMPHOMA
     Route: 048
     Dates: start: 20180720, end: 20180726
  12. LENALIDOMIDE [Suspect]
     Active Substance: LENALIDOMIDE
     Indication: DIFFUSE LARGE B-CELL LYMPHOMA
     Dosage: ADMINISTERED ORALLY, DAYS 1-15, AT A DOSE OF 15MG; EVERY 21 DAYS FOR UP TO 6 CYCLES, OR UNTIL DISEAS
     Route: 048
     Dates: start: 20180720, end: 20180731
  13. LENALIDOMIDE [Suspect]
     Active Substance: LENALIDOMIDE
     Dosage: LENALIDOMIDE WAS HELD ON DAY 2 (11/AUG/2018) DUE TO PATIENT^S SYMPTOMS.
     Route: 048
     Dates: start: 20180810, end: 20180810
  14. PREDNISONE. [Suspect]
     Active Substance: PREDNISONE
     Route: 048
     Dates: start: 20180720, end: 20180731

REACTIONS (6)
  - Sinus tachycardia [Recovered/Resolved]
  - Disease progression [Fatal]
  - Rash maculo-papular [Recovered/Resolved]
  - Pyrexia [Recovered/Resolved]
  - Hypotension [Recovered/Resolved]
  - Rash [Unknown]

NARRATIVE: CASE EVENT DATE: 20180730
